FAERS Safety Report 9522034 (Version 1)
Quarter: 2013Q3

REPORT INFORMATION
  Report Type: Spontaneous
  Country: US (occurrence: None)
  Receive Date: 20130823
  Receipt Date: 20130823
  Transmission Date: 20140515
  Serious: Yes (Other)
  Sender: FDA-Public Use
  Company Number: 2013PROUSA03079

PATIENT
  Age: 66 Year
  Sex: Male

DRUGS (1)
  1. PROVENGE (SIPULEUCEL-T) SUSPENSION, 250ML [Suspect]
     Indication: PROSTATE CANCER METASTATIC
     Route: 042
     Dates: start: 20130718, end: 20130718

REACTIONS (4)
  - Thrombosis [None]
  - Infusion site extravasation [None]
  - Infusion site pain [None]
  - Infusion site swelling [None]
